FAERS Safety Report 6429915-X (Version None)
Quarter: 2009Q4

REPORT INFORMATION
  Report Type: 
  Country: None (occurrence: None)
  Receive Date: 20091106
  Receipt Date: 20091028
  Transmission Date: 20100525
  Serious: Yes (Hospitalization)
  Sender: FDA-Public Use
  Company Number: FR-JNJFOC-20091008568

PATIENT
  Age: 80 Year
  Sex: Female

DRUGS (9)
  1. TAVANIC [Suspect]
     Indication: LUNG DISORDER
     Route: 048
     Dates: start: 20090627, end: 20090710
  2. CALCIPARINE [Suspect]
     Route: 058
     Dates: start: 20090601, end: 20090707
  3. CALCIPARINE [Suspect]
     Indication: THROMBOSIS PROPHYLAXIS
     Route: 058
     Dates: start: 20090601, end: 20090707
  4. CEFTRIAXONE [Suspect]
     Indication: LUNG DISORDER
     Route: 042
  5. LYRICA [Concomitant]
     Route: 048
  6. LASILIX [Concomitant]
     Route: 048
  7. LEXOMIL [Concomitant]
     Route: 048
  8. ASPEGIC 1000 [Concomitant]
     Route: 048
  9. AMOXICILLIN AND CLAVULANATE POTASSIUM [Concomitant]
     Indication: LUNG DISORDER
     Route: 048
     Dates: start: 20090601, end: 20090627

REACTIONS (2)
  - ATRIAL FLUTTER [None]
  - THROMBOCYTOPENIA [None]
